FAERS Safety Report 5119771-4 (Version None)
Quarter: 2006Q3

REPORT INFORMATION
  Report Type: 
  Country: None (occurrence: None)
  Receive Date: 20060928
  Receipt Date: 20060915
  Transmission Date: 20061208
  Serious: Yes (Other)
  Sender: FDA-Public Use
  Company Number: 2006113409

PATIENT
  Sex: Male

DRUGS (1)
  1. DETROL LA [Suspect]

REACTIONS (2)
  - AMNESIA [None]
  - DISORIENTATION [None]
